FAERS Safety Report 7903177-6 (Version None)
Quarter: 2011Q4

REPORT INFORMATION
  Report Type: 
  Country: None (occurrence: None)
  Receive Date: 20111103
  Receipt Date: 20111027
  Transmission Date: 20120403
  Serious: Yes (Other)
  Sender: FDA-Public Use
  Company Number: 2011SP047757

PATIENT
  Age: 33 Year
  Sex: Female

DRUGS (18)
  1. LEXAPRO [Concomitant]
  2. HYDRODIURIL [Concomitant]
  3. FENOFIBRATE [Concomitant]
  4. RISPERDAL CONSTA [Concomitant]
  5. LAMICTAL [Concomitant]
  6. COGENTIN [Concomitant]
  7. LOVAZA [Concomitant]
  8. ATIVAN [Concomitant]
  9. REQUIP [Concomitant]
  10. PRILOSEC [Concomitant]
  11. SAPHRIS [Suspect]
     Indication: HALLUCINATION, VISUAL
     Dosage: 5 MG;BID;SL, 10 MG;BID;SL
     Route: 060
     Dates: start: 20110601, end: 20111003
  12. SAPHRIS [Suspect]
     Indication: SCHIZOAFFECTIVE DISORDER
     Dosage: 5 MG;BID;SL, 10 MG;BID;SL
     Route: 060
     Dates: start: 20110601, end: 20111003
  13. SAPHRIS [Suspect]
     Indication: HALLUCINATION, VISUAL
     Dosage: 5 MG;BID;SL, 10 MG;BID;SL
     Route: 060
     Dates: start: 20110531, end: 20110607
  14. SAPHRIS [Suspect]
     Indication: SCHIZOAFFECTIVE DISORDER
     Dosage: 5 MG;BID;SL, 10 MG;BID;SL
     Route: 060
     Dates: start: 20110531, end: 20110607
  15. MULTIPLE VITAMIN [Concomitant]
  16. TOPROL-XL [Concomitant]
  17. REGLAN [Concomitant]
  18. MAXZIDE [Concomitant]

REACTIONS (4)
  - OESOPHAGEAL STENOSIS [None]
  - WEIGHT DECREASED [None]
  - VOMITING [None]
  - DYSPHAGIA [None]
